FAERS Safety Report 8098483 (Version 2)
Quarter: 2012Q4

REPORT INFORMATION
  Report Type: Report from Study
  Country: JP (occurrence: JP)
  Receive Date: 20110819
  Receipt Date: 20120830
  Transmission Date: 20130627
  Serious: Yes (Other)
  Sender: FDA-Public Use
  Company Number: PHHY2011JP72798

PATIENT
  Age: 37 Year
  Sex: Female

DRUGS (24)
  1. LEPONEX / CLOZARIL [Suspect]
     Indication: SCHIZOPHRENIA, PARANOID TYPE
     Dosage: 12.5 mg
     Route: 048
     Dates: start: 20101204
  2. LEPONEX / CLOZARIL [Suspect]
     Dosage: 25 mg
     Route: 048
     Dates: start: 20101205
  3. LEPONEX / CLOZARIL [Suspect]
     Dosage: 50 mg
     Route: 048
     Dates: start: 20101206
  4. LEPONEX / CLOZARIL [Suspect]
     Dosage: 75 mg
     Route: 048
     Dates: start: 20101207
  5. LEPONEX / CLOZARIL [Suspect]
     Dosage: 100 mg
     Dates: start: 20101208
  6. LEPONEX / CLOZARIL [Suspect]
     Dosage: 125 mg, UNK
     Route: 048
     Dates: start: 20101209
  7. LEPONEX / CLOZARIL [Suspect]
     Dosage: 150 mg
     Route: 048
     Dates: start: 20101210
  8. LEPONEX / CLOZARIL [Suspect]
     Dosage: 175 mg
     Route: 048
     Dates: start: 20101211
  9. LEPONEX / CLOZARIL [Suspect]
     Dosage: 200 mg
     Route: 048
     Dates: start: 20101212
  10. LEPONEX / CLOZARIL [Suspect]
     Dosage: 225 mg
     Route: 048
     Dates: start: 20101213
  11. LEPONEX / CLOZARIL [Suspect]
     Dosage: 250 mg
     Route: 048
     Dates: start: 20101214
  12. LEPONEX / CLOZARIL [Suspect]
     Dosage: 275 mg
     Route: 048
     Dates: start: 20101215
  13. LEPONEX / CLOZARIL [Suspect]
     Dosage: 300 mg
     Route: 048
     Dates: start: 20101216
  14. LEPONEX / CLOZARIL [Suspect]
     Dosage: 400 mg
     Route: 048
     Dates: start: 20110105, end: 20110111
  15. LEPONEX / CLOZARIL [Suspect]
     Dosage: 500 mg
     Route: 048
     Dates: start: 20110112
  16. MYSLEE [Concomitant]
     Indication: SCHIZOPHRENIA, PARANOID TYPE
     Dosage: 10 mg
     Route: 048
     Dates: start: 20080709
  17. ROHYPNOL [Concomitant]
     Dosage: 2 mg
     Route: 048
     Dates: start: 20081105
  18. LENDORMIN [Concomitant]
     Dosage: 0.5 mg
     Route: 048
     Dates: start: 20090423
  19. RISPERDAL [Concomitant]
     Route: 048
  20. LULLAN [Concomitant]
     Route: 048
  21. ZYPREXA [Concomitant]
     Route: 048
  22. SEROQUEL [Concomitant]
     Route: 048
  23. ABILIFY [Concomitant]
     Route: 048
  24. BLONANSERIN [Concomitant]
     Route: 048

REACTIONS (9)
  - Fall [Unknown]
  - Syncope [Recovering/Resolving]
  - Convulsion [Unknown]
  - Tremor [Not Recovered/Not Resolved]
  - Constipation [Not Recovered/Not Resolved]
  - Lymphocyte count decreased [Not Recovered/Not Resolved]
  - Eosinophil count decreased [Recovered/Resolved]
  - Eosinophil count increased [Not Recovered/Not Resolved]
  - Monocyte count decreased [Recovered/Resolved]
